FAERS Safety Report 9630714 (Version 1)
Quarter: 2013Q4

REPORT INFORMATION
  Report Type: Spontaneous
  Country: US (occurrence: None)
  Receive Date: 20131015
  Receipt Date: 20131015
  Transmission Date: 20140711
  Serious: Yes (Hospitalization, Other)
  Sender: FDA-Public Use
  Company Number: 2012-003762

PATIENT
  Age: 70 Year
  Sex: Female

DRUGS (14)
  1. ACTONEL [Suspect]
     Indication: OSTEOPOROSIS
     Route: 048
     Dates: start: 199906, end: 200202
  2. FOSAMAX PLUS D [Suspect]
     Dosage: ONCE WEEKLY
     Dates: start: 200710, end: 200907
  3. FOSAMAX [Suspect]
     Dates: start: 200205, end: 200807
  4. TAMOXIFEN [Concomitant]
  5. MIACALCIN (CALCITONIN, SALMON) [Concomitant]
  6. FORTEO (TERIPARATIDE) [Concomitant]
  7. MEVACOR (LOVASTATIN) [Concomitant]
  8. VASOTEC /00574902/ (ENALAPRIL MALEATE) [Concomitant]
  9. MOTRIN (IBUPROFEN) [Concomitant]
  10. TYLENOL /00020001/ (PARACETAMOL) [Concomitant]
  11. ATIVAN (LORAZEPAM) [Concomitant]
  12. METAMUCIL /0.0029101/ (PLANTAGO OVATA) [Concomitant]
  13. OSCAL /000751519/ (CALCIUM CARBONATE) [Concomitant]
  14. VITAMIN D /00318501/ (COLOECALCIFERAL) [Concomitant]

REACTIONS (8)
  - Femur fracture [None]
  - Fracture displacement [None]
  - Pathological fracture [None]
  - Bone pain [None]
  - Drug ineffective [None]
  - Nausea [None]
  - Vomiting [None]
  - Dyspepsia [None]
